FAERS Safety Report 7669754-5 (Version None)
Quarter: 2011Q3

REPORT INFORMATION
  Report Type: 
  Country: None (occurrence: None)
  Receive Date: 20110808
  Receipt Date: 20110804
  Transmission Date: 20111222
  Serious: Yes (Hospitalization)
  Sender: FDA-Public Use
  Company Number: DE-ABBOTT-11P-062-0843904-00

PATIENT

DRUGS (1)
  1. ZEMPLAR [Suspect]
     Indication: PRODUCT USED FOR UNKNOWN INDICATION

REACTIONS (2)
  - PERIPHERAL ARTERIAL OCCLUSIVE DISEASE [None]
  - DIABETES MELLITUS [None]
